FAERS Safety Report 13157620 (Version 1)
Quarter: 2017Q1

REPORT INFORMATION
  Report Type: Spontaneous
  Country: US (occurrence: US)
  Receive Date: 20170126
  Receipt Date: 20170126
  Transmission Date: 20170428
  Serious: Yes (Other)
  Sender: FDA-Public Use
  Company Number: None

PATIENT
  Sex: Male

DRUGS (1)
  1. CAPECITABINE 500MG ACCORD [Suspect]
     Active Substance: CAPECITABINE
     Indication: COLON CANCER
     Dosage: 4 TABLETS (2,000 MG) TWICE DAILY FOR 14 DAYS ON AND 7 DAYS OFF BY MOUTH
     Route: 048
     Dates: start: 20161223

REACTIONS (2)
  - Stomatitis [None]
  - Erythema [None]
